FAERS Safety Report 4893606-7 (Version None)
Quarter: 2005Q4

REPORT INFORMATION
  Report Type: 
  Country: None (occurrence: None)
  Receive Date: 20051223
  Receipt Date: 20051014
  Transmission Date: 20060501
  Serious: No
  Sender: FDA-Public Use
  Company Number: 2005PV003234

PATIENT
  Age: 53 Year
  Sex: Female

DRUGS (9)
  1. SYMLIN [Suspect]
     Indication: DIABETES MELLITUS NON-INSULIN-DEPENDENT
     Dosage: 60 MCG;TID;SC
     Route: 058
     Dates: start: 20050101, end: 20050101
  2. LIPITOR [Concomitant]
  3. PLAVIX [Concomitant]
  4. ISOSORBIDE [Concomitant]
  5. COZAAR [Concomitant]
  6. METOPROLOL [Concomitant]
  7. ASPIRIN [Concomitant]
  8. HUMALOG [Concomitant]
  9. LANTUS [Concomitant]

REACTIONS (3)
  - DIZZINESS [None]
  - FLUSHING [None]
  - TACHYCARDIA [None]
